FAERS Safety Report 25538910 (Version 1)
Quarter: 2025Q3

REPORT INFORMATION
  Report Type: Spontaneous
  Country: US (occurrence: None)
  Receive Date: 20250709
  Receipt Date: 20250709
  Transmission Date: 20251020
  Serious: Yes (Other)
  Sender: FDA-CTU
  Company Number: None

PATIENT
  Sex: Female

DRUGS (11)
  1. BOTOX [Suspect]
     Active Substance: ONABOTULINUMTOXINA
     Dates: start: 20221101
  2. ATORVASTATIN TAB 20MG [Concomitant]
  3. CELEBREX CAP 200MG [Concomitant]
  4. CELECOXIB CAP 100MG [Concomitant]
  5. DIAZEPAM TAB 10MG [Concomitant]
  6. ESOMEPRAZOLE MAGNESIUM [Concomitant]
     Active Substance: ESOMEPRAZOLE MAGNESIUM
  7. EXEMESTANE [Concomitant]
     Active Substance: EXEMESTANE
  8. GABAPENTIN CAP 100MG [Concomitant]
  9. LIPITOR TAB 10MG [Concomitant]
  10. LISINOPRIL [Concomitant]
     Active Substance: LISINOPRIL
  11. METFORMIN TAB [Concomitant]

REACTIONS (4)
  - Fall [None]
  - Head injury [None]
  - Subdural haematoma [None]
  - Lung neoplasm malignant [None]
